FAERS Safety Report 7379198-1 (Version None)
Quarter: 2011Q1

REPORT INFORMATION
  Report Type: 
  Country: None (occurrence: None)
  Receive Date: 20110328
  Receipt Date: 20110318
  Transmission Date: 20110831
  Serious: Yes (Death, Hospitalization)
  Sender: FDA-Public Use
  Company Number: US-AMGEN-USASP2011015117

PATIENT
  Age: 34 Year
  Sex: Male

DRUGS (9)
  1. LISINOPRIL [Concomitant]
  2. LEXAPRO [Concomitant]
  3. ENBREL [Suspect]
     Indication: PSORIASIS
     Dosage: 50 MG, UNK
     Dates: start: 20080101, end: 20110301
  4. METHOTREXATE [Concomitant]
  5. STELARA [Concomitant]
     Dosage: UNK
     Dates: start: 20100101, end: 20110101
  6. XANAX [Concomitant]
  7. TRAZODONE [Concomitant]
  8. CAMPRAL                            /01016801/ [Concomitant]
  9. HUMIRA [Concomitant]

REACTIONS (2)
  - LIVER INJURY [None]
  - GASTROINTESTINAL HAEMORRHAGE [None]
